FAERS Safety Report 9051278 (Version 1)
Quarter: 2013Q1

REPORT INFORMATION
  Report Type: Spontaneous
  Country: FR (occurrence: FR)
  Receive Date: 20130206
  Receipt Date: 20130206
  Transmission Date: 20140127
  Serious: Yes (Hospitalization)
  Sender: FDA-Public Use
  Company Number: FR-009507513-1301FRA014548

PATIENT
  Sex: Female

DRUGS (8)
  1. SINEMET L.P. [Suspect]
     Indication: PARKINSON^S DISEASE
     Dosage: 1 DF, QID
     Route: 048
     Dates: start: 2001, end: 201111
  2. COMTAN [Suspect]
     Indication: PARKINSON^S DISEASE
     Dosage: 2 G, QD
     Route: 048
     Dates: start: 2001, end: 201111
  3. LIBRAX [Suspect]
     Indication: ANXIETY
     Dosage: 1 DF, TID
     Route: 048
     Dates: end: 201111
  4. RIVOTRIL [Concomitant]
     Indication: EPILEPSY
     Dosage: 5 DF, PRN
     Route: 048
  5. GUTRON [Concomitant]
     Dosage: 2.5 MG, BID
  6. DOLIPRANE [Concomitant]
  7. SPASFON [Concomitant]
     Dosage: 1 DF, TID
  8. CARBOLEVURE [Concomitant]

REACTIONS (3)
  - Hallucination, visual [Recovering/Resolving]
  - Confusional state [Recovering/Resolving]
  - Disorientation [Recovering/Resolving]
